FAERS Safety Report 5807161-8 (Version None)
Quarter: 2008Q3

REPORT INFORMATION
  Report Type: 
  Country: None (occurrence: None)
  Receive Date: 20080711
  Receipt Date: 20080707
  Transmission Date: 20090109
  Serious: Yes (Other)
  Sender: FDA-Public Use
  Company Number: A0651966A

PATIENT
  Age: 76 Year
  Sex: Female

DRUGS (6)
  1. ADVAIR DISKUS 100/50 [Suspect]
     Indication: ASTHMA
     Dosage: 1PUFF TWICE PER DAY
     Route: 055
  2. SINGULAIR [Concomitant]
  3. ALBUTEROL [Concomitant]
  4. FLONASE [Concomitant]
  5. EYE DROPS [Concomitant]
  6. NASAL SALINE SOLUTION [Concomitant]

REACTIONS (5)
  - CONTUSION [None]
  - LYMPHOCYTE COUNT DECREASED [None]
  - NASAL DRYNESS [None]
  - PULMONARY HYPERTENSION [None]
  - SWELLING FACE [None]
